FAERS Safety Report 9119308 (Version 1)
Quarter: 2013Q1

REPORT INFORMATION
  Report Type: Spontaneous
  Country: DE (occurrence: DE)
  Receive Date: 20130207
  Receipt Date: 20130207
  Transmission Date: 20140127
  Serious: Yes (Death)
  Sender: FDA-Public Use
  Company Number: DE-ASTRAZENECA-2013SE08000

PATIENT
  Age: 45 Year
  Sex: Female
  Weight: 70 kg

DRUGS (9)
  1. PROPOFOL [Suspect]
     Indication: SEDATION
     Dosage: 140-400
     Route: 058
     Dates: start: 20121224, end: 20121231
  2. KCL [Concomitant]
     Dosage: AS REQUIRED
     Route: 048
     Dates: start: 20121225, end: 20130101
  3. ARTERENOL [Concomitant]
     Indication: HAEMODYNAMIC INSTABILITY
     Dosage: 1-6 MG/H
     Route: 042
     Dates: start: 20121224, end: 20130101
  4. NIMODIPINE [Concomitant]
     Indication: VASOSPASM
     Dosage: 1-2 MG/H
     Route: 042
     Dates: start: 20121224, end: 20130101
  5. MINIRIN [Concomitant]
     Indication: DIABETES INSIPIDUS
     Dosage: 0-20 MG
     Route: 058
     Dates: start: 20121225, end: 20121228
  6. HYDROCORTISON [Concomitant]
     Indication: SEPSIS
     Dosage: 10 MG/H
     Route: 042
     Dates: start: 20121225, end: 20130101
  7. L-THYROXIN [Concomitant]
     Indication: HYPOTHYROIDISM
     Dosage: 50 MICROGRAMS
     Route: 048
     Dates: start: 20121225, end: 20130101
  8. SUFENTA [Concomitant]
     Indication: SEDATION
     Dosage: 20 UG/H
     Route: 042
     Dates: start: 20121224, end: 20130101
  9. MIDAZOLAM [Concomitant]
     Indication: SEDATION
     Dosage: 5-20 MG/H
     Route: 042
     Dates: start: 20121224, end: 20130101

REACTIONS (3)
  - Lactic acidosis [Fatal]
  - Multi-organ failure [Fatal]
  - Rhabdomyolysis [Fatal]
